FAERS Safety Report 9464012 (Version 1)
Quarter: 2013Q3

REPORT INFORMATION
  Report Type: Spontaneous
  Country: US (occurrence: US)
  Receive Date: 20130819
  Receipt Date: 20130819
  Transmission Date: 20140515
  Serious: No
  Sender: FDA-Public Use
  Company Number: US-BRISTOL-MYERS SQUIBB COMPANY-18849844

PATIENT
  Age: 60 Year
  Sex: Male
  Weight: 112.92 kg

DRUGS (3)
  1. REYATAZ [Suspect]
     Indication: HIV INFECTION
  2. TRUVADA [Concomitant]
     Dosage: 1DF: 300/200MG
  3. NORVIR [Concomitant]

REACTIONS (3)
  - Diabetes mellitus inadequate control [Unknown]
  - Neuropathy peripheral [Unknown]
  - Lipids increased [Unknown]
